FAERS Safety Report 5630710-X (Version None)
Quarter: 2008Q1

REPORT INFORMATION
  Report Type: 
  Country: None (occurrence: None)
  Receive Date: 20080213
  Receipt Date: 20080205
  Transmission Date: 20080703
  Serious: Yes (Other)
  Sender: FDA-Public Use
  Company Number: 2008003194

PATIENT
  Age: 52 Year
  Sex: Female
  Weight: 52.1637 kg

DRUGS (1)
  1. PURELL ORIGINAL (ETHYL ALCOHOL) [Suspect]
     Indication: ACCIDENTAL EXPOSURE
     Dosage: OPHTHALMIC
     Route: 047
     Dates: start: 20080130, end: 20080130

REACTIONS (4)
  - ACCIDENTAL EXPOSURE [None]
  - CHEMICAL BURNS OF EYE [None]
  - CORNEAL ABRASION [None]
  - EYE PAIN [None]
